FAERS Safety Report 7163193-1 (Version None)
Quarter: 2010Q4

REPORT INFORMATION
  Report Type: 
  Country: None (occurrence: None)
  Receive Date: 20101215
  Receipt Date: 20100311
  Transmission Date: 20110411
  Serious: Yes (Hospitalization)
  Sender: FDA-Public Use
  Company Number: FR-PFIZER INC-2010031391

PATIENT
  Age: 69 Year
  Sex: Female

DRUGS (11)
  1. LYRICA [Suspect]
     Dosage: UNK
     Route: 048
     Dates: end: 20100124
  2. COAPROVEL [Suspect]
     Dosage: 300 MG, 1X/DAY
     Route: 048
     Dates: end: 20100123
  3. ZANIDIP [Suspect]
     Dosage: UNK
     Route: 048
     Dates: end: 20100124
  4. CACIT D3 [Suspect]
     Dosage: UNK
     Route: 048
     Dates: end: 20100124
  5. ARIMIDEX [Suspect]
     Dosage: UNK
     Route: 048
     Dates: end: 20100123
  6. ACTONEL [Suspect]
     Dosage: UNK
     Route: 048
     Dates: end: 20100123
  7. HYDROCORTISONE [Concomitant]
     Dosage: UNK
  8. CEFIXIME [Concomitant]
     Indication: URINARY TRACT INFECTION
     Dosage: UNK
     Dates: start: 20091214, end: 20100107
  9. OFLOXACIN [Concomitant]
     Indication: URINARY TRACT INFECTION
     Dosage: UNK
     Dates: start: 20091214, end: 20100107
  10. PRISTINAMYCIN [Concomitant]
     Indication: URINARY TRACT INFECTION
     Dosage: UNK
     Dates: start: 20091214, end: 20100107
  11. MOPRAL [Concomitant]
     Dosage: UNK
     Dates: start: 20100110

REACTIONS (5)
  - BONE MARROW FAILURE [None]
  - CONJUNCTIVAL HAEMORRHAGE [None]
  - MOUTH HAEMORRHAGE [None]
  - PANCYTOPENIA [None]
  - PURPURA [None]
